FAERS Safety Report 4308070-6 (Version None)
Quarter: 2004Q1

REPORT INFORMATION
  Report Type: 
  Country: None (occurrence: None)
  Receive Date: 20040226
  Receipt Date: 20030806
  Transmission Date: 20041129
  Serious: Yes (Hospitalization)
  Sender: FDA-Public Use
  Company Number: 2003169050US

PATIENT
  Age: 60 Year
  Sex: Male
  Weight: 80.7 kg

DRUGS (6)
  1. CELEBREX [Suspect]
     Indication: ARTHRITIS
     Dosage: 200 UNK, UNK; ORAL
     Route: 048
     Dates: start: 20030408, end: 20030603
  2. LIPITOR [Concomitant]
  3. ALTACE [Concomitant]
  4. PROZAC [Concomitant]
  5. LAMDASOL [Concomitant]
  6. FOSAMAX [Concomitant]

REACTIONS (1)
  - GASTROINTESTINAL HAEMORRHAGE [None]
